FAERS Safety Report 10423070 (Version 3)
Quarter: 2015Q1

REPORT INFORMATION
  Report Type: Spontaneous
  Country: US (occurrence: None)
  Receive Date: 20140722
  Receipt Date: 20150120
  Transmission Date: 20150720
  Serious: No
  Sender: FDA-Public Use
  Company Number: AEGR000523

PATIENT
  Age: 65 Year
  Sex: Female
  Weight: 86.6 kg

DRUGS (25)
  1. LYRICA [Concomitant]
     Active Substance: PREGABALIN
  2. NITROGLYCERIN (NITROGLYCERIN) [Concomitant]
     Active Substance: NITROGLYCERIN
  3. COD LIVER OIL (COD LIVER OIL) [Concomitant]
  4. TRAMADOL (TRAMADOL HYDROCHLORIDE) [Concomitant]
     Active Substance: TRAMADOL HYDROCHLORIDE
  5. CYCLOBENZAPRINE (CYCLOBENZAPRINE) [Concomitant]
     Active Substance: CYCLOBENZAPRINE
  6. LASIX [Concomitant]
     Active Substance: FUROSEMIDE
  7. ASPIRIN. [Concomitant]
     Active Substance: ASPIRIN
  8. JUXTAPID [Suspect]
     Active Substance: LOMITAPIDE MESYLATE
     Indication: TYPE IIA HYPERLIPIDAEMIA
     Route: 048
     Dates: start: 20140512
  9. DOXEPIN HCL (DOXEPIN HYDROCHLORIDE) [Concomitant]
     Active Substance: DOXEPIN HYDROCHLORIDE
  10. VITAMIN B6 [Concomitant]
     Active Substance: PYRIDOXINE HYDROCHLORIDE
  11. VITAMIN E [Concomitant]
     Active Substance: .ALPHA.-TOCOPHEROL
  12. PLAVIX (CLOPIDOGREL BISULFATE) [Concomitant]
  13. GARLIC (GARLIC) [Concomitant]
  14. ALBUTEROL (SALBUTAMOL SULFATE) [Concomitant]
  15. APAP W/HYDROCODONE (APAP W/HYDROCODONE) [Concomitant]
  16. MELOXICAM (MELOXICAM) [Concomitant]
     Active Substance: MELOXICAM
  17. METOPROLOL TARTRATE (METOPROLOL TARTRATE) [Concomitant]
  18. RANITIDINE HCL (RANITIDINE HYDROCHLORIDE) [Concomitant]
  19. CLOPIDOGREL [Concomitant]
     Active Substance: CLOPIDOGREL BISULFATE
  20. VITAMIN B (VITAMIN B COMPLEX) [Concomitant]
  21. OMEGA 3 6 9 (OMEGA 9 FATTY ACIDS, OMEGA 3 FATTY ACIDS, OMEGA 6 FATTY ACIDS) [Concomitant]
  22. METAMUCIL PLUS CALCIUM (CALCIUM CARBONATE, PLANTAGO OVATA HUSK) [Concomitant]
  23. ASPIRIN (ACETYLSALICYLIC ACID ) [Concomitant]
  24. METAMUCIL (PLANTAGO OVATA) [Concomitant]
  25. VITAMIN D3 [Concomitant]
     Active Substance: CHOLECALCIFEROL

REACTIONS (7)
  - Diarrhoea [None]
  - Cough [None]
  - Oropharyngeal pain [None]
  - Muscle spasms [None]
  - Asthenia [None]
  - Constipation [None]
  - Weight decreased [None]

NARRATIVE: CASE EVENT DATE: 201405
